FAERS Safety Report 19882222 (Version 2)
Quarter: 2021Q3

REPORT INFORMATION
  Report Type: Report from Study
  Country: US (occurrence: US)
  Receive Date: 20210925
  Receipt Date: 20210928
  Transmission Date: 20211014
  Serious: No
  Sender: FDA-Public Use
  Company Number: NVSC2021US218325

PATIENT
  Sex: Female
  Weight: 61 kg

DRUGS (2)
  1. TADALAFIL. [Concomitant]
     Active Substance: TADALAFIL
     Indication: PRODUCT USED FOR UNKNOWN INDICATION
     Route: 065
  2. TREPROSTINIL. [Suspect]
     Active Substance: TREPROSTINIL
     Indication: PULMONARY ARTERIAL HYPERTENSION
     Dosage: 67 NG/KG/MIN
     Route: 042
     Dates: start: 20210916

REACTIONS (4)
  - Malaise [Unknown]
  - Dizziness [Unknown]
  - Blood pressure abnormal [Unknown]
  - Blood glucose fluctuation [Unknown]
